FAERS Safety Report 12194318 (Version 1)
Quarter: 2016Q1

REPORT INFORMATION
  Report Type: Spontaneous
  Country: US (occurrence: US)
  Receive Date: 20160321
  Receipt Date: 20160321
  Transmission Date: 20160526
  Serious: Yes (Other)
  Sender: FDA-Public Use
  Company Number: US-ZYDUS-006958

PATIENT
  Age: 53 Year
  Sex: Female

DRUGS (1)
  1. ATENOLOL/ATENOLOL HYDROCHLORIDE [Suspect]
     Active Substance: ATENOLOL HYDROCHLORIDE
     Indication: CARDIAC ABLATION
     Dosage: 6.25MG, TWICE DAILY, PO
     Route: 048
     Dates: start: 201403

REACTIONS (11)
  - Atrial fibrillation [Recovered/Resolved]
  - Heart rate increased [None]
  - Headache [Recovered/Resolved]
  - Product physical issue [Recovered/Resolved]
  - Tremor [Recovered/Resolved]
  - Paraesthesia [Recovered/Resolved]
  - Drug administration error [Recovered/Resolved]
  - Swollen tongue [Recovered/Resolved]
  - Lethargy [Recovered/Resolved]
  - Fatigue [Recovered/Resolved]
  - Malaise [Recovered/Resolved]

NARRATIVE: CASE EVENT DATE: 20150206
